FAERS Safety Report 19084283 (Version 2)
Quarter: 2021Q2

REPORT INFORMATION
  Report Type: Report from Study
  Country: US (occurrence: US)
  Receive Date: 20210401
  Receipt Date: 20210601
  Transmission Date: 20210717
  Serious: Yes (Hospitalization)
  Sender: FDA-Public Use
  Company Number: US-ADAMAS PHARMA, LLC-2021ADA00456

PATIENT
  Age: 73 Year
  Sex: Female
  Weight: 96.6 kg

DRUGS (24)
  1. METOPROLOL. [Concomitant]
     Active Substance: METOPROLOL
  2. MAGNESIUM [Concomitant]
     Active Substance: MAGNESIUM
  3. OTEZLA [Concomitant]
     Active Substance: APREMILAST
     Dosage: 2 DOSAGE UNITS
     Dates: start: 2021
  4. ATORVASTATIN [Suspect]
     Active Substance: ATORVASTATIN
     Dosage: UNK
     Dates: end: 202012
  5. CARBIDOPA/LEVODOPA [Concomitant]
     Active Substance: CARBIDOPA\LEVODOPA
  6. CALCIUM [Concomitant]
     Active Substance: CALCIUM
     Dosage: UNK, 1X/DAY
  7. UNSPECIFIED INJECTION FOR MAGULAR DEGENERATION [Concomitant]
  8. VITAMIN C [Concomitant]
     Active Substance: ASCORBIC ACID
  9. VITAMIN D [Concomitant]
     Active Substance: VITAMIN D NOS
     Dosage: 1000 UNK, 1X/DAY
  10. LISINOPRIL. [Concomitant]
     Active Substance: LISINOPRIL
     Dosage: 30 MG, 2X/DAY
  11. SEROQUEL [Concomitant]
     Active Substance: QUETIAPINE FUMARATE
  12. FUROSEMIDE. [Concomitant]
     Active Substance: FUROSEMIDE
  13. POTASSIUM/ MAGNESIUM ASPARTATE [Concomitant]
  14. GOCOVRI [Suspect]
     Active Substance: AMANTADINE
     Indication: DYSKINESIA
     Dosage: 274 MG, 1X/DAY AT BEDTIME
     Route: 048
     Dates: start: 20201031
  15. GABAPENTIN. [Concomitant]
     Active Substance: GABAPENTIN
  16. SUNOSI [Concomitant]
     Active Substance: SOLRIAMFETOL
  17. FOLID ACID [Concomitant]
  18. MULTIVITAMIN [Concomitant]
     Active Substance: VITAMINS
  19. AREDS 2 [Concomitant]
     Active Substance: MINERALS\VITAMINS
  20. OTEZLA [Concomitant]
     Active Substance: APREMILAST
     Dosage: 1 DOSAGE UNITS
     Dates: start: 2019, end: 2021
  21. PANTOPRAZOLE [Concomitant]
     Active Substance: PANTOPRAZOLE
  22. IBUPROFEN. [Concomitant]
     Active Substance: IBUPROFEN
  23. METHOTREXATE. [Concomitant]
     Active Substance: METHOTREXATE
  24. FEOSOL IRON [Concomitant]

REACTIONS (5)
  - Pneumonia [Recovered/Resolved]
  - Cardiac failure [Not Recovered/Not Resolved]
  - Ulcer [Recovered/Resolved]
  - Fall [Unknown]
  - Muscle spasms [Recovered/Resolved]

NARRATIVE: CASE EVENT DATE: 2020
